FAERS Safety Report 9029369 (Version 2)
Quarter: 2013Q1

REPORT INFORMATION
  Report Type: Spontaneous
  Country: US (occurrence: US)
  Receive Date: 20130125
  Receipt Date: 20130204
  Transmission Date: 20140127
  Serious: No
  Sender: FDA-Public Use
  Company Number: US-PFIZER INC-2013032306

PATIENT
  Age: 57 Year
  Sex: Female
  Weight: 67.12 kg

DRUGS (7)
  1. LYRICA [Suspect]
     Indication: TRIGEMINAL NERVE DISORDER
     Dosage: 75 MG, 3X/DAY
     Route: 048
     Dates: start: 20120926
  2. LIPITOR [Concomitant]
     Indication: BLOOD CHOLESTEROL INCREASED
     Dosage: 10 MG, 1X/DAY
  3. CLARINEX [Concomitant]
     Dosage: 5 UNK, UNK
  4. FLUOXETINE [Concomitant]
     Dosage: 20 UNK, UNK
  5. REMERON [Concomitant]
     Dosage: UNK
  6. SINGULAIR [Concomitant]
     Dosage: UNK
  7. XANAX [Concomitant]
     Dosage: UNK

REACTIONS (2)
  - Confusional state [Unknown]
  - Blood cholesterol increased [Unknown]
